FAERS Safety Report 24291946 (Version 1)
Quarter: 2024Q3

REPORT INFORMATION
  Report Type: Spontaneous
  Country: US (occurrence: None)
  Receive Date: 20240905
  Receipt Date: 20240905
  Transmission Date: 20241017
  Serious: Yes (Other)
  Sender: Public
  Company Number: None

PATIENT
  Age: 47 Year
  Sex: Female

DRUGS (1)
  1. TERIFLUNOMIDE [Suspect]
     Active Substance: TERIFLUNOMIDE
     Indication: Multiple sclerosis
     Dosage: FREQUENCY : DAILY;?

REACTIONS (5)
  - Hypersensitivity [None]
  - Hypoaesthesia [None]
  - Paraesthesia [None]
  - Therapy interrupted [None]
  - Product substitution issue [None]

NARRATIVE: CASE EVENT DATE: 20240810
